FAERS Safety Report 8804382 (Version 1)
Quarter: 2012Q4

REPORT INFORMATION
  Report Type: 
  Country: US (occurrence: US)
  Receive Date: 20120923
  Receipt Date: 20120923
  Transmission Date: 20130627
  Serious: No
  Sender: FDA-Public Use
  Company Number: US-BIOGENIDEC-2012BI037383

PATIENT
  Age: 40 Year
  Sex: Female

DRUGS (2)
  1. AVONEX [Suspect]
     Indication: MULTIPLE SCLEROSIS
     Route: 030
     Dates: start: 19961101, end: 20050101
  2. AVONEX [Suspect]
     Indication: MULTIPLE SCLEROSIS
     Route: 030
     Dates: start: 20070501

REACTIONS (1)
  - Feeling abnormal [Recovered/Resolved]
